FAERS Safety Report 5559231-X (Version None)
Quarter: 2007Q4

REPORT INFORMATION
  Report Type: 
  Country: None (occurrence: None)
  Receive Date: 20071214
  Receipt Date: 20071126
  Transmission Date: 20080405
  Serious: No
  Sender: FDA-Public Use
  Company Number: US-ABBOTT-07P-163-0418154-00

PATIENT
  Sex: Male

DRUGS (1)
  1. HUMIRA [Suspect]
     Indication: CROHN'S DISEASE
     Dates: start: 20071001

REACTIONS (5)
  - DIZZINESS [None]
  - HEADACHE [None]
  - INCREASED TENDENCY TO BRUISE [None]
  - PRURITUS [None]
  - RASH [None]
